FAERS Safety Report 13177224 (Version 1)
Quarter: 2017Q1

REPORT INFORMATION
  Report Type: Report from Study
  Country: US (occurrence: US)
  Receive Date: 20170201
  Receipt Date: 20170201
  Transmission Date: 20170428
  Serious: No
  Sender: FDA-Public Use
  Company Number: US-EXELIXIS-CABO-16007459

PATIENT
  Sex: Male

DRUGS (15)
  1. MORPHINE [Concomitant]
     Active Substance: MORPHINE
  2. BENADRYL [Concomitant]
     Active Substance: DIPHENHYDRAMINE HYDROCHLORIDE
  3. TRAZODONE [Concomitant]
     Active Substance: TRAZODONE HYDROCHLORIDE
  4. TYLENOL [Concomitant]
     Active Substance: ACETAMINOPHEN
  5. ATIVAN [Concomitant]
     Active Substance: LORAZEPAM
  6. CELEXA [Concomitant]
     Active Substance: CITALOPRAM HYDROBROMIDE
  7. COMETRIQ [Suspect]
     Active Substance: CABOZANTINIB S-MALATE
     Indication: PRODUCT USED FOR UNKNOWN INDICATION
     Dosage: 60 MG, QD
     Route: 048
     Dates: start: 20160317
  8. LASIX [Concomitant]
     Active Substance: FUROSEMIDE
  9. MVI [Concomitant]
     Active Substance: VITAMINS
  10. ASPIRIN. [Concomitant]
     Active Substance: ASPIRIN
  11. ROPINIROLE. [Concomitant]
     Active Substance: ROPINIROLE
  12. SYNTHROID [Concomitant]
     Active Substance: LEVOTHYROXINE SODIUM
  13. RISPERDAL [Concomitant]
     Active Substance: RISPERIDONE
  14. DOXYCYCLINE. [Concomitant]
     Active Substance: DOXYCYCLINE
  15. KCL [Concomitant]
     Active Substance: POTASSIUM CHLORIDE

REACTIONS (2)
  - Skin exfoliation [Unknown]
  - Skin ulcer [Unknown]
